FAERS Safety Report 12686836 (Version 1)
Quarter: 2016Q3

REPORT INFORMATION
  Report Type: Report from Study
  Country: CA (occurrence: CA)
  Receive Date: 20160825
  Receipt Date: 20160825
  Transmission Date: 20161109
  Serious: Yes (Other)
  Sender: FDA-Public Use
  Company Number: CA-ALEXION PHARMACEUTICALS INC.-A201606112

PATIENT
  Sex: Female
  Weight: 12.1 kg

DRUGS (1)
  1. STRENSIQ [Suspect]
     Active Substance: ASFOTASE ALFA
     Indication: HYPOPHOSPHATASIA
     Dosage: 24 MG, TIW
     Route: 058
     Dates: start: 20140830

REACTIONS (3)
  - Vein rupture [Unknown]
  - Injection site haemorrhage [Unknown]
  - Accidental exposure to product [Unknown]
